FAERS Safety Report 8391861-2 (Version None)
Quarter: 2012Q2

REPORT INFORMATION
  Report Type: 
  Country: None (occurrence: None)
  Receive Date: 20120529
  Receipt Date: 20120521
  Transmission Date: 20120825
  Serious: Yes (Hospitalization, Congenital Anomaly)
  Sender: FDA-Public Use
  Company Number: US-GLAXOSMITHKLINE-A0950666A

PATIENT
  Sex: Male

DRUGS (3)
  1. PAXIL [Suspect]
     Indication: PANIC DISORDER
     Dosage: 40MG PER DAY
     Route: 064
     Dates: start: 19990101
  2. PAROXETINE [Suspect]
     Indication: PANIC DISORDER
     Route: 064
  3. MULTI-VITAMINS [Concomitant]
     Route: 064

REACTIONS (5)
  - TALIPES [None]
  - GASTROINTESTINAL DISORDER [None]
  - TETHERED CORD SYNDROME [None]
  - FOETAL EXPOSURE DURING PREGNANCY [None]
  - AUTOMATIC BLADDER [None]
